FAERS Safety Report 15133639 (Version 1)
Quarter: 2018Q3

REPORT INFORMATION
  Report Type: Spontaneous
  Country: US (occurrence: US)
  Receive Date: 20180615
  Receipt Date: 20180615
  Transmission Date: 20181010
  Serious: Yes (Hospitalization)
  Sender: FDA-Public Use
  Company Number: None

PATIENT
  Age: 79 Year
  Sex: Female
  Weight: 45.9 kg

DRUGS (2)
  1. CARBOPLATIN. [Suspect]
     Active Substance: CARBOPLATIN
     Dates: end: 20180417
  2. TAXOL [Suspect]
     Active Substance: PACLITAXEL
     Dates: end: 20180417

REACTIONS (4)
  - Haemoglobin decreased [None]
  - Fatigue [None]
  - Febrile neutropenia [None]
  - Pneumonia [None]

NARRATIVE: CASE EVENT DATE: 20180501
